FAERS Safety Report 7922042 (Version 6)
Quarter: 2015Q3

REPORT INFORMATION
  Report Type: Spontaneous
  Country: US (occurrence: US)
  Receive Date: 20110429
  Receipt Date: 20150925
  Transmission Date: 20151125
  Serious: Yes (Other)
  Sender: FDA-Public Use
  Company Number: US-ASTRAZENECA-2010SE59084

PATIENT
  Age: 62 Year
  Sex: Female

DRUGS (3)
  1. PREDNISONE. [Concomitant]
     Active Substance: PREDNISONE
  2. NEXIUM [Suspect]
     Active Substance: ESOMEPRAZOLE MAGNESIUM
     Route: 048
  3. NEXIUM [Suspect]
     Active Substance: ESOMEPRAZOLE MAGNESIUM
     Route: 048

REACTIONS (11)
  - Road traffic accident [Unknown]
  - Narcolepsy [Unknown]
  - Somnolence [Unknown]
  - Pain [Unknown]
  - Craniocerebral injury [Unknown]
  - Influenza [Unknown]
  - Infectious mononucleosis [Unknown]
  - Visual impairment [Unknown]
  - Head injury [Unknown]
  - Intentional product misuse [Not Recovered/Not Resolved]
  - Liver disorder [Unknown]
